FAERS Safety Report 11113810 (Version 1)
Quarter: 2015Q2

REPORT INFORMATION
  Report Type: Spontaneous
  Country: US (occurrence: US)
  Receive Date: 20150514
  Receipt Date: 20150514
  Transmission Date: 20150821
  Serious: Yes (Death)
  Sender: FDA-Public Use
  Company Number: US-009507513-1505USA005224

PATIENT
  Age: 78 Year
  Sex: Male

DRUGS (21)
  1. EMEND [Suspect]
     Active Substance: APREPITANT
     Dosage: 150 MG DAY 1
     Route: 048
     Dates: start: 201501
  2. XARELTO [Concomitant]
     Active Substance: RIVAROXABAN
  3. LEVAQUIN [Concomitant]
     Active Substance: LEVOFLOXACIN
  4. PROMETHAZINE [Concomitant]
     Active Substance: PROMETHAZINE\PROMETHAZINE HYDROCHLORIDE
  5. SELENIUM SULFIDE. [Concomitant]
     Active Substance: SELENIUM SULFIDE
  6. BUPROPION HYDROCHLORIDE. [Concomitant]
     Active Substance: BUPROPION HYDROCHLORIDE
  7. COMPAZINE [Concomitant]
     Active Substance: PROCHLORPERAZINE MALEATE
  8. FLOMAX [Concomitant]
     Active Substance: TAMSULOSIN HYDROCHLORIDE
  9. OXYCODONE [Concomitant]
     Active Substance: OXYCODONE
  10. PROTONIX [Concomitant]
     Active Substance: PANTOPRAZOLE SODIUM
  11. ROPINIROLE. [Concomitant]
     Active Substance: ROPINIROLE
  12. EMEND [Suspect]
     Active Substance: APREPITANT
     Dosage: 150 MG DAY 3
     Route: 048
     Dates: start: 201501
  13. PREDNISONE. [Concomitant]
     Active Substance: PREDNISONE
  14. ZOCOR [Concomitant]
     Active Substance: SIMVASTATIN
  15. EMEND [Suspect]
     Active Substance: APREPITANT
     Dosage: 150 MG DAY 2
     Route: 048
     Dates: start: 201501
  16. MEGACE [Concomitant]
     Active Substance: MEGESTROL ACETATE
  17. FAMOTIDINE. [Concomitant]
     Active Substance: FAMOTIDINE
  18. FLONASE [Concomitant]
     Active Substance: FLUTICASONE PROPIONATE
  19. LORAZEPAM. [Concomitant]
     Active Substance: LORAZEPAM
  20. METOPROLOL [Concomitant]
     Active Substance: METOPROLOL
  21. ZOFRAN [Concomitant]
     Active Substance: ONDANSETRON HYDROCHLORIDE

REACTIONS (1)
  - Death [Fatal]

NARRATIVE: CASE EVENT DATE: 20150429
